FAERS Safety Report 25160695 (Version 2)
Quarter: 2025Q3

REPORT INFORMATION
  Report Type: Report from Study
  Country: US (occurrence: US)
  Receive Date: 20250404
  Receipt Date: 20250729
  Transmission Date: 20251021
  Serious: No
  Sender: SANDOZ
  Company Number: US-SANDOZ-SDZ2025US019914

PATIENT
  Age: 73 Year
  Sex: Male

DRUGS (1)
  1. HYRIMOZ [Suspect]
     Active Substance: ADALIMUMAB-ADAZ
     Indication: Product used for unknown indication
     Dosage: 80 MG, Q2W
     Route: 065
     Dates: start: 20250321, end: 20250321

REACTIONS (1)
  - Increased insulin requirement [Unknown]

NARRATIVE: CASE EVENT DATE: 20250321
